FAERS Safety Report 6355946-4 (Version None)
Quarter: 2009Q3

REPORT INFORMATION
  Report Type: 
  Country: None (occurrence: None)
  Receive Date: 20090915
  Receipt Date: 20090908
  Transmission Date: 20100115
  Serious: Yes (Other)
  Sender: FDA-Public Use
  Company Number: ZA-JNJFOC-20090902787

PATIENT
  Age: 78 Year
  Sex: Female

DRUGS (4)
  1. RISPERDAL [Suspect]
     Route: 065
  2. RISPERDAL [Suspect]
     Indication: DRUG USE FOR UNKNOWN INDICATION
     Route: 065
  3. ZYPREXA [Suspect]
     Indication: DRUG USE FOR UNKNOWN INDICATION
     Route: 065
  4. ALL OTHER THERAPEUTIC PRODUCT [Suspect]
     Indication: DRUG USE FOR UNKNOWN INDICATION
     Route: 065

REACTIONS (2)
  - DELIRIUM [None]
  - NEUROLEPTIC MALIGNANT SYNDROME [None]
